FAERS Safety Report 17572825 (Version 1)
Quarter: 2020Q1

REPORT INFORMATION
  Report Type: Spontaneous
  Country: US (occurrence: US)
  Receive Date: 20200323
  Receipt Date: 20200323
  Transmission Date: 20200409
  Serious: Yes (Death)
  Sender: FDA-Public Use
  Company Number: None

PATIENT
  Age: 86 Year
  Sex: Female
  Weight: 59.85 kg

DRUGS (16)
  1. VENTOLIN HFA 108 [Concomitant]
  2. DIPHENOXYLATE-ATROPINE 2.5-0.025 [Concomitant]
  3. LORAZEPAM 0.5 MG [Concomitant]
     Active Substance: LORAZEPAM
  4. GABAPENTIN 300 MG [Concomitant]
     Active Substance: GABAPENTIN
  5. OXYCONTIN [Concomitant]
     Active Substance: OXYCODONE HYDROCHLORIDE
  6. BRAFTOVI [Suspect]
     Active Substance: ENCORAFENIB
     Indication: MALIGNANT MELANOMA
     Route: 048
     Dates: start: 20200227, end: 20200322
  7. MEKTOVI [Suspect]
     Active Substance: BINIMETINIB
     Indication: MALIGNANT MELANOMA
     Route: 048
     Dates: start: 20200314, end: 20200322
  8. PROCHLORPERAZINE 10 MG [Concomitant]
  9. OXYCODONE 5 MG [Concomitant]
     Active Substance: OXYCODONE
  10. LEVOTHYROXINE 100 MCG [Concomitant]
     Active Substance: LEVOTHYROXINE
  11. ADVAIR DISKUS 250-50 [Concomitant]
  12. MIRTAZAPINE 15 MG [Concomitant]
     Active Substance: MIRTAZAPINE
  13. OXYCONTIN [Concomitant]
     Active Substance: OXYCODONE HYDROCHLORIDE
  14. MONTELUKAST 10 MG [Concomitant]
     Active Substance: MONTELUKAST SODIUM
  15. ELIQUIS [Concomitant]
     Active Substance: APIXABAN
  16. LISINOPRIL 10 MG [Concomitant]
     Active Substance: LISINOPRIL

REACTIONS (1)
  - Death [None]

NARRATIVE: CASE EVENT DATE: 20200322
